FAERS Safety Report 24172971 (Version 1)
Quarter: 2024Q3

REPORT INFORMATION
  Report Type: Spontaneous
  Country: GB (occurrence: GB)
  Receive Date: 20240805
  Receipt Date: 20240805
  Transmission Date: 20241017
  Serious: Yes (Other)
  Sender: SANDOZ
  Company Number: GB-002147023-NVSC2023GB248418

PATIENT

DRUGS (2)
  1. FULVESTRANT [Suspect]
     Active Substance: FULVESTRANT
     Indication: Product used for unknown indication
     Dosage: UNK
     Route: 065
  2. RIBOCICLIB [Suspect]
     Active Substance: RIBOCICLIB
     Indication: Product used for unknown indication
     Dosage: UNK
     Route: 065

REACTIONS (6)
  - Liver disorder [Unknown]
  - Malignant neoplasm progression [Unknown]
  - Hepatotoxicity [Unknown]
  - Liver function test abnormal [Unknown]
  - Hepatic enzyme increased [Unknown]
  - Anxiety [Unknown]
